FAERS Safety Report 5289224-1 (Version None)
Quarter: 2007Q1

REPORT INFORMATION
  Report Type: 
  Country: None (occurrence: None)
  Receive Date: 20070124
  Receipt Date: 20060703
  Transmission Date: 20070707
  Serious: Yes (Disabling, Other)
  Sender: FDA-Public Use
  Company Number: HQWYE598706JUL06

PATIENT
  Age: 68 Year
  Sex: Male
  Weight: 68.1 kg

DRUGS (2)
  1. CORDARONE [Suspect]
     Indication: ATRIAL FIBRILLATION
     Dosage: 200 MG 1X PER 1 DAY, ORAL
     Route: 048
     Dates: start: 20060301, end: 20060601
  2. WARFARIN SODIUM [Concomitant]

REACTIONS (3)
  - DEPOSIT EYE [None]
  - PHOTOPHOBIA [None]
  - VISUAL ACUITY REDUCED [None]
